FAERS Safety Report 9277995 (Version 1)
Quarter: 2013Q2

REPORT INFORMATION
  Report Type: Spontaneous
  Country: AU (occurrence: AU)
  Receive Date: 20130508
  Receipt Date: 20130508
  Transmission Date: 20140414
  Serious: Yes (Other)
  Sender: FDA-Public Use
  Company Number: PHHY2013AU045121

PATIENT
  Age: 61 Year
  Sex: Female

DRUGS (1)
  1. ACLASTA [Suspect]
     Dosage: UNK
     Route: 042

REACTIONS (3)
  - Dysstasia [Unknown]
  - Micturition urgency [Unknown]
  - Malaise [Unknown]
